FAERS Safety Report 17399925 (Version 2)
Quarter: 2020Q2

REPORT INFORMATION
  Report Type: Report from Study
  Country: IT (occurrence: IT)
  Receive Date: 20200211
  Receipt Date: 20200415
  Transmission Date: 20200713
  Serious: Yes (Hospitalization)
  Sender: FDA-Public Use
  Company Number: IT-BRISTOL-MYERS SQUIBB COMPANY-BMS-2020-008516

PATIENT
  Age: 86 Year
  Sex: Female

DRUGS (1)
  1. WARFARIN SODIUM. [Suspect]
     Active Substance: WARFARIN SODIUM
     Indication: PROPHYLAXIS
     Dosage: 20 MILLIGRAM TOTAL AS PROPHYLAXIS
     Route: 048
     Dates: start: 20200115

REACTIONS (3)
  - Overdose [Unknown]
  - International normalised ratio increased [Unknown]
  - Medication error [Unknown]

NARRATIVE: CASE EVENT DATE: 20200115
